FAERS Safety Report 18861965 (Version 1)
Quarter: 2021Q1

REPORT INFORMATION
  Report Type: Spontaneous
  Country: FR (occurrence: FR)
  Receive Date: 20210209
  Receipt Date: 20210209
  Transmission Date: 20210420
  Serious: Yes (Life-Threatening, Hospitalization)
  Sender: FDA-Public Use
  Company Number: FR-SA-2021SA036714

PATIENT
  Age: 86 Year
  Sex: Female
  Weight: 57 kg

DRUGS (3)
  1. MABELIO [Suspect]
     Active Substance: CEFTOBIPROLE
     Indication: OSTEOMYELITIS
     Dosage: 500 MG, TID
     Route: 042
     Dates: start: 20201231, end: 20210111
  2. RIFAMPICIN [Suspect]
     Active Substance: RIFAMPIN
     Indication: OSTEOMYELITIS
     Dosage: 600 MG, QD
     Route: 048
     Dates: start: 20201231, end: 20210114
  3. MABELIO [Suspect]
     Active Substance: CEFTOBIPROLE
     Indication: OSTEOMYELITIS
     Dosage: 1 G, TID
     Route: 042
     Dates: start: 20210112, end: 20210114

REACTIONS (2)
  - Hyponatraemia [Recovered/Resolved]
  - Hyponatraemia [Recovered/Resolved]

NARRATIVE: CASE EVENT DATE: 20210102
